FAERS Safety Report 5014466-X (Version None)
Quarter: 2006Q2

REPORT INFORMATION
  Report Type: 
  Country: None (occurrence: None)
  Receive Date: 20060531
  Receipt Date: 20060524
  Transmission Date: 20061013
  Serious: Yes (Life-Threatening, Hospitalization)
  Sender: FDA-Public Use
  Company Number: US-JNJFOC-20060404082

PATIENT
  Sex: Female

DRUGS (12)
  1. DOXIL [Suspect]
     Route: 042
  2. DOXIL [Suspect]
     Route: 042
  3. DOXIL [Suspect]
     Route: 042
  4. DOXIL [Suspect]
     Route: 042
  5. DOXIL [Suspect]
     Route: 042
  6. PRILOSEC [Concomitant]
  7. COUMADIN [Concomitant]
  8. ALLEGRA [Concomitant]
  9. TOPROL-XL [Concomitant]
  10. WELLBUTRIN [Concomitant]
  11. SYNTHROID [Concomitant]
  12. TYLENOL (GELTAB) [Concomitant]

REACTIONS (9)
  - COUGH [None]
  - DIFFICULTY IN WALKING [None]
  - DYSPNOEA [None]
  - HYPERSENSITIVITY [None]
  - HYPOXIA [None]
  - OXYGEN SATURATION DECREASED [None]
  - PNEUMONITIS [None]
  - RESPIRATORY RATE INCREASED [None]
  - RHINORRHOEA [None]
